FAERS Safety Report 4714240-5 (Version None)
Quarter: 2005Q3

REPORT INFORMATION
  Report Type: 
  Country: None (occurrence: None)
  Receive Date: 20050714
  Receipt Date: 20050704
  Transmission Date: 20060218
  Serious: Yes (Other)
  Sender: FDA-Public Use
  Company Number: US-JNJFOC-20050701138

PATIENT
  Sex: Female
  Weight: 113.4 kg

DRUGS (8)
  1. REMICADE [Suspect]
     Route: 042
  2. REMICADE [Suspect]
     Indication: RHEUMATOID ARTHRITIS
     Dosage: EVERY 8-9 WEEKS, DURATION OVER ONE YEAR
     Route: 042
  3. PLAQUENIL [Concomitant]
     Indication: RHEUMATOID ARTHRITIS
  4. METHOTREXATE [Concomitant]
     Indication: RHEUMATOID ARTHRITIS
  5. ZALDIVE [Concomitant]
     Indication: RHEUMATOID ARTHRITIS
  6. NAPROSEN [Concomitant]
     Indication: RHEUMATOID ARTHRITIS
  7. PIROXICAM [Concomitant]
     Indication: RHEUMATOID ARTHRITIS
  8. AMITRIPTYLINE HCL [Concomitant]

REACTIONS (8)
  - CHEST DISCOMFORT [None]
  - DYSPNOEA [None]
  - FUNGAL INFECTION [None]
  - HYPERHIDROSIS [None]
  - INFUSION RELATED REACTION [None]
  - PNEUMONIA BACTERIAL [None]
  - PYREXIA [None]
  - WHOLE BLOOD TRANSFUSION [None]
